FAERS Safety Report 25390908 (Version 1)
Quarter: 2025Q2

REPORT INFORMATION
  Report Type: Spontaneous
  Country: US (occurrence: US)
  Receive Date: 20250603
  Receipt Date: 20250603
  Transmission Date: 20250716
  Serious: No
  Sender: ROCHE
  Company Number: US-ROCHE-10000297000

PATIENT
  Sex: Male

DRUGS (2)
  1. HEMLIBRA [Suspect]
     Active Substance: EMICIZUMAB-KXWH
     Indication: Factor VIII deficiency
     Dosage: FORM STRENGTH: 105MG/0.7ML?DOSE: 75 MG (0.5 ML)
     Route: 058
     Dates: start: 20250307
  2. ALPHANATE INJ [Concomitant]

REACTIONS (1)
  - Haematoma [Unknown]
